FAERS Safety Report 25503709 (Version 1)
Quarter: 2025Q3

REPORT INFORMATION
  Report Type: Spontaneous
  Country: US (occurrence: US)
  Receive Date: 20250702
  Receipt Date: 20250702
  Transmission Date: 20251020
  Serious: No
  Sender: INNOGENIX, LLC
  Company Number: US-Innogenix, LLC-2179772

PATIENT
  Sex: Female

DRUGS (2)
  1. LABETALOL HYDROCHLORIDE [Suspect]
     Active Substance: LABETALOL HYDROCHLORIDE
     Indication: Pre-eclampsia
  2. PROCARDIA [Suspect]
     Active Substance: NIFEDIPINE

REACTIONS (3)
  - Swelling [Unknown]
  - Product use in unapproved indication [Unknown]
  - Headache [Unknown]
